FAERS Safety Report 6852149-1 (Version None)
Quarter: 2010Q3

REPORT INFORMATION
  Report Type: 
  Country: None (occurrence: None)
  Receive Date: 20100717
  Receipt Date: 20071108
  Transmission Date: 20110219
  Serious: No
  Sender: FDA-Public Use
  Company Number: US-PFIZER INC-2007094803

PATIENT
  Sex: Female
  Weight: 61.2 kg

DRUGS (6)
  1. CHANTIX [Suspect]
     Indication: SMOKING CESSATION THERAPY
     Route: 048
     Dates: start: 20071024
  2. SERTRALINE HCL [Concomitant]
  3. IMITREX [Concomitant]
     Indication: MIGRAINE
  4. IMITREX [Concomitant]
     Indication: TENSION HEADACHE
  5. MULTI-VITAMINS [Concomitant]
  6. VITAMIN C [Concomitant]

REACTIONS (3)
  - ABNORMAL DREAMS [None]
  - HEADACHE [None]
  - SOMNOLENCE [None]
